FAERS Safety Report 23975021 (Version 3)
Quarter: 2024Q3

REPORT INFORMATION
  Report Type: Report from Study
  Country: US (occurrence: US)
  Receive Date: 20240614
  Receipt Date: 20240807
  Transmission Date: 20241016
  Serious: Yes (Other)
  Sender: UCB
  Company Number: US-UCBSA-2024029696

PATIENT
  Age: 36 Year
  Sex: Male

DRUGS (5)
  1. BIMEKIZUMAB [Suspect]
     Active Substance: BIMEKIZUMAB
     Indication: Psoriasis
     Dosage: 320 MILLIGRAM, EV 4 WEEKS
     Route: 058
     Dates: start: 20231121
  2. BIMEKIZUMAB [Suspect]
     Active Substance: BIMEKIZUMAB
     Indication: Psoriatic arthropathy
  3. BIMEKIZUMAB [Suspect]
     Active Substance: BIMEKIZUMAB
     Indication: Osteoarthritis
  4. BIMEKIZUMAB [Suspect]
     Active Substance: BIMEKIZUMAB
     Indication: Off label use
  5. OTEZLA [Concomitant]
     Active Substance: APREMILAST
     Indication: Product used for unknown indication
     Dosage: UNK

REACTIONS (13)
  - Psoriatic arthropathy [Not Recovered/Not Resolved]
  - Psoriasis [Not Recovered/Not Resolved]
  - Pustular psoriasis [Not Recovered/Not Resolved]
  - Furuncle [Unknown]
  - Sleep disorder [Unknown]
  - Acne [Not Recovered/Not Resolved]
  - Abscess [Not Recovered/Not Resolved]
  - Skin infection [Not Recovered/Not Resolved]
  - Abscess drainage [Not Recovered/Not Resolved]
  - Skin weeping [Not Recovered/Not Resolved]
  - Product distribution issue [Unknown]
  - Therapy interrupted [Unknown]
  - Off label use [Unknown]

NARRATIVE: CASE EVENT DATE: 20231201
